FAERS Safety Report 17245279 (Version 1)
Quarter: 2020Q1

REPORT INFORMATION
  Report Type: Spontaneous
  Country: IT (occurrence: IT)
  Receive Date: 20200108
  Receipt Date: 20200108
  Transmission Date: 20200409
  Serious: Yes (Other)
  Sender: FDA-Public Use
  Company Number: IT-AUROBINDO-AUR-APL-2019-108688

PATIENT
  Sex: Female

DRUGS (4)
  1. CISPLATIN. [Suspect]
     Active Substance: CISPLATIN
     Indication: METASTASIS
     Dosage: UNK, (HYPERTHERMIC)
     Route: 033
  2. MITOMYCIN. [Suspect]
     Active Substance: MITOMYCIN
     Indication: METASTASIS
     Dosage: UNK, (HYPERTHERMIC)
     Route: 033
  3. CARBOPLATIN. [Suspect]
     Active Substance: CARBOPLATIN
     Indication: OVARIAN CANCER
     Dosage: UNK (7) CYCLICAL
     Route: 065
  4. PACLITAXEL. [Suspect]
     Active Substance: PACLITAXEL
     Indication: OVARIAN CANCER
     Dosage: UNK (7), CYCLICAL
     Route: 065

REACTIONS (4)
  - Respiratory failure [Recovering/Resolving]
  - Alexander disease [Unknown]
  - Gene mutation [Unknown]
  - Bronchitis [Recovering/Resolving]
